FAERS Safety Report 7465621-0 (Version None)
Quarter: 2011Q2

REPORT INFORMATION
  Report Type: 
  Country: None (occurrence: None)
  Receive Date: 20110509
  Receipt Date: 20110504
  Transmission Date: 20111010
  Serious: Yes (Death)
  Sender: FDA-Public Use
  Company Number: US-SANOFI-AVENTIS-2011SA028002

PATIENT
  Age: 73 Year
  Sex: Male

DRUGS (3)
  1. PLAVIX [Suspect]
     Route: 048
  2. ALL OTHER THERAPEUTIC PRODUCTS [Concomitant]
  3. INSULIN [Concomitant]

REACTIONS (1)
  - CARDIAC FAILURE [None]
